FAERS Safety Report 17518378 (Version 1)
Quarter: 2020Q1

REPORT INFORMATION
  Report Type: Spontaneous
  Country: ES (occurrence: ES)
  Receive Date: 20200309
  Receipt Date: 20200309
  Transmission Date: 20200409
  Serious: Yes (Other)
  Sender: FDA-Public Use
  Company Number: ES-MYLANLABS-2020M1024386

PATIENT
  Age: 43 Year
  Sex: Female
  Weight: 73 kg

DRUGS (4)
  1. CLARITHROMYCIN. [Suspect]
     Active Substance: CLARITHROMYCIN
     Indication: HELICOBACTER INFECTION
     Dosage: 1000 MILLIGRAM, QD
     Route: 048
     Dates: start: 20161221, end: 20161228
  2. AMOXICILINA                        /00249601/ [Concomitant]
     Active Substance: AMOXICILLIN
     Indication: HELICOBACTER INFECTION
     Dosage: 2 GRAM, QD
     Route: 048
     Dates: start: 20161221, end: 20170105
  3. OMEPRAZOL                          /00661201/ [Concomitant]
     Active Substance: OMEPRAZOLE
     Indication: HELICOBACTER INFECTION
     Dosage: 80 MILLIGRAM, QD
     Route: 048
     Dates: start: 20161221, end: 20170105
  4. METRONIDAZOL                       /00012501/ [Concomitant]
     Active Substance: METRONIDAZOLE
     Indication: HELICOBACTER INFECTION
     Dosage: 1000 MILLIGRAM, QD
     Route: 048
     Dates: start: 20161221, end: 20170105

REACTIONS (3)
  - Mood swings [Recovered/Resolved]
  - Nervousness [Recovered/Resolved]
  - Insomnia [Recovered/Resolved]

NARRATIVE: CASE EVENT DATE: 20161223
